FAERS Safety Report 10539733 (Version 4)
Quarter: 2017Q3

REPORT INFORMATION
  Report Type: Spontaneous
  Country: IT (occurrence: IT)
  Receive Date: 20141024
  Receipt Date: 20170808
  Transmission Date: 20171127
  Serious: Yes (Hospitalization)
  Sender: FDA-Public Use
  Company Number: IT-AUROBINDO-AUR-APL-2014-11079

PATIENT
  Age: 72 Year
  Sex: Female
  Weight: 81 kg

DRUGS (14)
  1. CYMBALTA [Interacting]
     Active Substance: DULOXETINE HYDROCHLORIDE
     Indication: BIPOLAR DISORDER
     Dosage: 60 MG, DAILY
     Route: 048
     Dates: start: 20140809, end: 20140811
  2. GLIBOMET [Concomitant]
     Active Substance: GLYBURIDE\METFORMIN HYDROCHLORIDE
     Indication: TYPE 2 DIABETES MELLITUS
     Dosage: 2 DF, UNK
     Route: 048
  3. SEACOR [Concomitant]
     Active Substance: OMEGA-3 FATTY ACIDS
     Indication: DYSLIPIDAEMIA
     Dosage: 3 G, UNK
     Route: 048
  4. METFORALMILLE [Concomitant]
     Active Substance: METFORMIN HYDROCHLORIDE
     Indication: TYPE 2 DIABETES MELLITUS
     Dosage: 1 G, UNK
     Route: 048
  5. FULCROSUPRA [Concomitant]
     Active Substance: FENOFIBRATE
     Indication: DYSLIPIDAEMIA
     Dosage: 145 MG, UNK
     Route: 048
  6. MIRTAZAPINE 15MG [Suspect]
     Active Substance: MIRTAZAPINE
     Indication: BIPOLAR DISORDER
     Dosage: 15 MG, DAILY
     Route: 048
     Dates: start: 20140809, end: 20140819
  7. DIURESIX                           /01036501/ [Concomitant]
     Active Substance: TORSEMIDE
     Indication: PRODUCT USED FOR UNKNOWN INDICATION
     Dosage: 10 MG, UNK
     Route: 048
     Dates: end: 20140812
  8. DICLOFENAC [Interacting]
     Active Substance: DICLOFENAC
     Indication: POLYMYALGIA RHEUMATICA
     Dosage: 100 MG, DAILY
     Route: 065
     Dates: start: 20140808, end: 20140811
  9. CARBOLITHIUM [Interacting]
     Active Substance: LITHIUM CARBONATE
     Indication: BIPOLAR DISORDER
     Dosage: 600 MG, DAILY
     Route: 048
     Dates: start: 20120101, end: 20140813
  10. CARBOLITHIUM [Interacting]
     Active Substance: LITHIUM CARBONATE
     Dosage: UNK
     Route: 065
     Dates: start: 20140819
  11. CATAPRESAN                         /00171101/ [Concomitant]
     Active Substance: CLONIDINE
     Indication: HYPERTENSION
     Dosage: 2 DF, UNK
     Route: 048
  12. ACETYLSALICYLIC ACID [Concomitant]
     Active Substance: ASPIRIN
     Indication: MYOCARDIAL ISCHAEMIA
     Dosage: 100 MG, UNK
     Route: 048
  13. LACIREX [Concomitant]
     Active Substance: LACIDIPINE
     Indication: HYPERTENSION
     Dosage: 1 DF, UNK
     Route: 048
  14. TARGIN [Concomitant]
     Active Substance: NALOXONE HYDROCHLORIDE\OXYCODONE HYDROCHLORIDE
     Indication: POLYMYALGIA RHEUMATICA
     Dosage: 3 DF, UNK
     Route: 048

REACTIONS (8)
  - Tonic clonic movements [Unknown]
  - Abdominal pain upper [Recovered/Resolved]
  - Drug interaction [Unknown]
  - Hyperhidrosis [Recovered/Resolved]
  - Asthenia [Recovered/Resolved]
  - Vomiting [Recovered/Resolved]
  - Palpitations [Recovered/Resolved]
  - Muscle spasms [Recovered/Resolved]

NARRATIVE: CASE EVENT DATE: 20140810
